FAERS Safety Report 19080158 (Version 1)
Quarter: 2021Q1

REPORT INFORMATION
  Report Type: Other
  Country: SE (occurrence: SE)
  Receive Date: 20210331
  Receipt Date: 20210331
  Transmission Date: 20210420
  Serious: Yes (Death, Hospitalization, Other)
  Sender: FDA-Public Use
  Company Number: SE-VALIDUS PHARMACEUTICALS LLC-SE-2021VAL000335

PATIENT
  Age: 82 Year
  Sex: Female

DRUGS (3)
  1. CLAFORAN [Suspect]
     Active Substance: CEFOTAXIME SODIUM
     Indication: UNEVALUABLE EVENT
     Dosage: UNK
     Route: 065
     Dates: start: 199907, end: 199907
  2. IMIPENEM [Concomitant]
     Active Substance: IMIPENEM
     Indication: UNEVALUABLE EVENT
  3. TIENAM [Suspect]
     Active Substance: CILASTATIN SODIUM\IMIPENEM
     Indication: UNEVALUABLE EVENT
     Dosage: UNK
     Route: 065
     Dates: start: 199907, end: 199907

REACTIONS (1)
  - Pseudomembranous colitis [Fatal]

NARRATIVE: CASE EVENT DATE: 199907
